FAERS Safety Report 16075853 (Version 1)
Quarter: 2019Q1

REPORT INFORMATION
  Report Type: Spontaneous
  Country: BE (occurrence: BE)
  Receive Date: 20190315
  Receipt Date: 20190315
  Transmission Date: 20190418
  Serious: Yes (Hospitalization)
  Sender: FDA-Public Use
  Company Number: BE-ACCORD-112935

PATIENT
  Age: 44 Year
  Sex: Male
  Weight: 82 kg

DRUGS (17)
  1. TRADONAL [Concomitant]
     Active Substance: TRAMADOL HYDROCHLORIDE
     Indication: PAIN
     Route: 048
     Dates: start: 201809
  2. PACLITAXEL/PACLITAXEL LIPOSOME [Concomitant]
     Indication: TESTICULAR NEOPLASM
     Dosage: TIP PROTOCOL (PACLITAXEL IFOSFAMIDE CISPLATIN 1Q3SEM) PACLITAXEL:?250MG / M2: 501 MG ON DAY 1
     Route: 042
     Dates: start: 20180917, end: 20180918
  3. UROMITEXAN [Concomitant]
     Active Substance: MESNA
     Dosage: 500MG/M2
     Route: 042
     Dates: start: 20180918, end: 20180922
  4. DEXAMETHASONE. [Concomitant]
     Active Substance: DEXAMETHASONE
     Route: 048
     Dates: start: 20180922, end: 20180925
  5. HOLOXAN [Suspect]
     Active Substance: IFOSFAMIDE
     Indication: TESTICULAR NEOPLASM
     Dosage: TIP PROTOCOL (PACLITAXEL IFOSFAMIDE CISPLATIN 1Q3SEM: IFOSFAMIDE?1500MG / M2: 3G MG ON D2 TO D5
     Route: 042
     Dates: start: 20180918, end: 20180922
  6. ZANTAC [Concomitant]
     Active Substance: RANITIDINE HYDROCHLORIDE
     Route: 042
     Dates: start: 20180917, end: 20180918
  7. PANTOMED [Concomitant]
     Dosage: INCREASED DOSES FOR GASTROINTESTINAL BLEEDING ON GASTRIC ULCER
     Route: 048
  8. PHENERGAN [Concomitant]
     Active Substance: PROMETHAZINE HYDROCHLORIDE
     Route: 030
     Dates: start: 20180917, end: 20180918
  9. TEMESTA [Concomitant]
     Route: 048
     Dates: start: 20180917, end: 20180922
  10. CATAFLAM [Suspect]
     Active Substance: DICLOFENAC POTASSIUM
     Indication: PRODUCT USED FOR UNKNOWN INDICATION
     Route: 048
     Dates: start: 201809, end: 20180925
  11. INNOHEP [Concomitant]
     Active Substance: TINZAPARIN SODIUM
     Indication: DEEP VEIN THROMBOSIS
     Dosage: SWITCH FOR HEPARIN DURING HOSPITALIZATION
     Route: 058
     Dates: start: 20180801, end: 20180925
  12. ZOFRAN [Concomitant]
     Active Substance: ONDANSETRON HYDROCHLORIDE
     Dosage: ALSO RECEIVED FROM 17-SEP-2018 TO 22-SEP-2018 BY INTRAVENOUS ROUTE
     Route: 048
     Dates: start: 20180922, end: 20180926
  13. NEULASTA [Concomitant]
     Active Substance: PEGFILGRASTIM
     Route: 058
     Dates: start: 20180922, end: 20180923
  14. IMODIUM [Concomitant]
     Active Substance: LOPERAMIDE HYDROCHLORIDE
     Indication: DIARRHOEA
     Dosage: TREATMENT OF QQ J IF NECESSARY
     Route: 048
     Dates: start: 20180916, end: 201809
  15. MAGNESIUM/POTASSIUM [Concomitant]
     Dosage: 1G MG SULFATE + 1.5G KCL / 1X DAY IV
  16. CISPLATIN. [Suspect]
     Active Substance: CISPLATIN
     Indication: TESTICULAR NEOPLASM
     Dosage: TIP PROTOCOL (PACLITAXEL IFOSFAMIDE CISPLATIN 1Q3SEM: CISPLATIN 25MG / M2: 50 MG ON D2 AT D5
     Route: 042
     Dates: start: 20180918, end: 20180922
  17. AACIDEXAM [Concomitant]
     Active Substance: DEXAMETHASONE
     Route: 042
     Dates: start: 20180917, end: 20180922

REACTIONS (4)
  - Septic shock [Not Recovered/Not Resolved]
  - Hypertension [Not Recovered/Not Resolved]
  - Febrile neutropenia [Not Recovered/Not Resolved]
  - Acute kidney injury [Not Recovered/Not Resolved]

NARRATIVE: CASE EVENT DATE: 20180925
